FAERS Safety Report 20697229 (Version 1)
Quarter: 2022Q2

REPORT INFORMATION
  Report Type: Spontaneous
  Country: US (occurrence: None)
  Receive Date: 20220408
  Receipt Date: 20220408
  Transmission Date: 20220721
  Serious: Yes (Hospitalization)
  Sender: FDA-Public Use
  Company Number: None

PATIENT
  Sex: Female
  Weight: 71.21 kg

DRUGS (5)
  1. CYCLOPHOSPHAMIDE [Suspect]
     Active Substance: CYCLOPHOSPHAMIDE
     Indication: Plasma cell myeloma
     Dosage: OTHER FREQUENCY : 2 WKS ON 2 WKS OFF;?
     Route: 048
  2. METOPROLOL [Concomitant]
  3. AMLODIPINE [Concomitant]
  4. ZOFRAN [Concomitant]
  5. DARZALEX [Concomitant]

REACTIONS (1)
  - Hospitalisation [None]
